FAERS Safety Report 22331033 (Version 1)
Quarter: 2023Q2

REPORT INFORMATION
  Report Type: Spontaneous
  Country: US (occurrence: US)
  Receive Date: 20230517
  Receipt Date: 20230517
  Transmission Date: 20230721
  Serious: Yes (Death, Other)
  Sender: FDA-Public Use
  Company Number: US-STRIDES ARCOLAB LIMITED-2023SP007146

PATIENT
  Age: 7 Decade

DRUGS (5)
  1. ETOPOSIDE [Suspect]
     Active Substance: ETOPOSIDE
     Indication: Rosai-Dorfman syndrome
     Dosage: UNK
     Route: 065
  2. COBIMETINIB [Suspect]
     Active Substance: COBIMETINIB
     Indication: Rosai-Dorfman syndrome
     Dosage: 20 MILLIGRAM, QD, FOR 21 DAYS IN A 28-DAY CYCLE
     Route: 048
  3. CLADRIBINE [Suspect]
     Active Substance: CLADRIBINE
     Indication: Rosai-Dorfman syndrome
     Dosage: UNK
     Route: 065
  4. VINBLASTINE [Suspect]
     Active Substance: VINBLASTINE
     Indication: Rosai-Dorfman syndrome
     Dosage: UNK
     Route: 065
  5. HYDROXYUREA [Suspect]
     Active Substance: HYDROXYUREA
     Indication: Rosai-Dorfman syndrome
     Dosage: UNK
     Route: 065

REACTIONS (2)
  - Myelodysplastic syndrome [Fatal]
  - Drug ineffective for unapproved indication [Unknown]
